FAERS Safety Report 6816866-1 (Version None)
Quarter: 2010Q3

REPORT INFORMATION
  Report Type: 
  Country: None (occurrence: None)
  Receive Date: 20100706
  Receipt Date: 20100628
  Transmission Date: 20110219
  Serious: Yes (Hospitalization, Other)
  Sender: FDA-Public Use
  Company Number: US-JNJFOC-20100308667

PATIENT
  Sex: Male

DRUGS (7)
  1. NUCYNTA [Suspect]
     Indication: ARTHRALGIA
     Dosage: 1 EVERY 6 HOURS AS NEEDED
     Route: 048
  2. VICODIN [Concomitant]
     Indication: PAIN
     Dosage: AS NEEDED
     Route: 048
  3. FLOMAX [Concomitant]
     Route: 065
  4. AVODART [Concomitant]
     Route: 065
  5. VITAMIN TAB [Concomitant]
     Route: 065
  6. METHIMAZOLE [Concomitant]
     Route: 065
  7. ASPIRIN [Concomitant]
     Route: 065

REACTIONS (5)
  - CONFUSIONAL STATE [None]
  - DEHYDRATION [None]
  - FALL [None]
  - FEELING ABNORMAL [None]
  - RENAL IMPAIRMENT [None]
